FAERS Safety Report 20583131 (Version 1)
Quarter: 2022Q1

REPORT INFORMATION
  Report Type: Spontaneous
  Country: CN (occurrence: CN)
  Receive Date: 20220311
  Receipt Date: 20220311
  Transmission Date: 20220424
  Serious: Yes (Other)
  Sender: FDA-Public Use
  Company Number: CN-BAXTER-2022BAX005119

PATIENT
  Age: 14 Year
  Sex: Female
  Weight: 42.7 kg

DRUGS (16)
  1. CYCLOPHOSPHAMIDE [Suspect]
     Active Substance: CYCLOPHOSPHAMIDE
     Indication: T-cell type acute leukaemia
     Dosage: (0.9% NS INJECTION 500 ML + CYCLOPHOSPHAMIDE FOR INJECTION 1000 MG?ROUTE: INTRA-PUMP INJECTION
     Route: 050
     Dates: start: 20220101, end: 20220101
  2. CYCLOPHOSPHAMIDE [Suspect]
     Active Substance: CYCLOPHOSPHAMIDE
     Dosage: (0.9% NS INJECTION  + CYCLOPHOSPHAMIDE FOR INJECTION ?ROUTE: INTRA-PUMP INJECTION
     Route: 050
  3. SODIUM CHLORIDE [Suspect]
     Active Substance: SODIUM CHLORIDE
     Indication: Medication dilution
     Dosage: 0.9% NS 250 ML + DAUNORUBICIN HYDROCHLORIDE INJECTION 40 MG INJECTION ?ROUTE: INTRA-PUMP INJECTION
     Route: 050
     Dates: start: 20220101, end: 20220122
  4. SODIUM CHLORIDE [Suspect]
     Active Substance: SODIUM CHLORIDE
     Dosage: 0.9% NS 500 ML + CYCLOPHOSPHAMIDE INJECTION 1000 MG  INJECTION ONCE?ROUTE: INTRA-PUMP INJECTION
     Route: 050
     Dates: start: 20220101, end: 20220101
  5. SODIUM CHLORIDE [Suspect]
     Active Substance: SODIUM CHLORIDE
     Dosage: VINCRISTINE SULFATE 2 MG + SODIUM CHLORIDE INJECTION 90 ML INTRAVENOUS INJECTION ONCE/7 DAYS
     Route: 042
     Dates: start: 20220101, end: 20220122
  6. SODIUM CHLORIDE [Suspect]
     Active Substance: SODIUM CHLORIDE
     Dosage: PEGASPARGASE INJECTION 3000IU + SODIUM CHLORIDE INJECTION 18 ML INTRAMUSCULAR INJECTION ONCE
     Route: 030
     Dates: start: 20220109, end: 20220109
  7. SODIUM CHLORIDE [Suspect]
     Active Substance: SODIUM CHLORIDE
     Dosage: INTRA-PUMP INJECTION, SODIUM CHLORIDE INJECTION + DAUNORUBICIN HYDROCHLORIDE (DOSE RE-INTRODUCED)
     Route: 050
  8. SODIUM CHLORIDE [Suspect]
     Active Substance: SODIUM CHLORIDE
     Dosage: INTRA-PUMP INJECTION, NS INJECTION + CYCLOPHOSPHAMIDE FOR INJECTION (DOSE RE-INTRODUCED)
     Route: 050
  9. SODIUM CHLORIDE [Suspect]
     Active Substance: SODIUM CHLORIDE
     Dosage: VINCRISTINE SULFATE FOR INJECTION + SODIUM CHLORIDE INJECTION (DOSE RE-INTRODUCED)
     Route: 042
  10. SODIUM CHLORIDE [Suspect]
     Active Substance: SODIUM CHLORIDE
     Dosage: PEGASPARGASE INJECTION + SODIUM CHLORIDE INJECTION (DOSE RE-INTRODUCED)
     Route: 030
  11. VINCRISTINE SULFATE [Suspect]
     Active Substance: VINCRISTINE SULFATE
     Indication: T-cell type acute leukaemia
     Dosage: VINCRISTINE SULFATE FOR INJECTION 2 MG + NS INJECTION 90 MG INTRAVENOUS INJECTION ONCE/7 DAYS
     Route: 042
     Dates: start: 20220101, end: 20220122
  12. VINCRISTINE SULFATE [Suspect]
     Active Substance: VINCRISTINE SULFATE
     Dosage: VINCRISTINE SULFATE FOR INJECTION + SODIUM CHLORIDE INJECTION (DOSE RE-INTRODUCED)
     Route: 042
  13. DAUNORUBICIN HYDROCHLORIDE [Suspect]
     Active Substance: DAUNORUBICIN HYDROCHLORIDE
     Indication: T-cell type acute leukaemia
     Dosage: 0.9% NS 250 ML + DAUNORUBICIN HYDROCHLORIDE FOR INJECTION 40 MG?ROUTE: INTRA-PUMP INJECTION
     Route: 050
     Dates: start: 20220101, end: 20220122
  14. DAUNORUBICIN HYDROCHLORIDE [Suspect]
     Active Substance: DAUNORUBICIN HYDROCHLORIDE
     Dosage: (0.9% NS INJECTION + DAUNORUBICIN HYDROCHLORIDE) (DOSE RE-INTRODUCED)?ROUTE: INTRA-PUMP INJECTION
     Route: 050
  15. PEGASPARGASE [Suspect]
     Active Substance: PEGASPARGASE
     Indication: T-cell type acute leukaemia
     Dosage: PEGASPARGASE INJECTION 3000IU + SODIUM CHLORIDE INJECTION 18 ML INTRAMUSCULAR INJECTION ONCE
     Route: 030
     Dates: start: 20220109, end: 20220109
  16. PEGASPARGASE [Suspect]
     Active Substance: PEGASPARGASE
     Dosage: PEGASPARGASE INJECTION + SODIUM CHLORIDE INJECTION (DOSE RE-INTRODUCED)
     Route: 030

REACTIONS (1)
  - Myelosuppression [Recovering/Resolving]

NARRATIVE: CASE EVENT DATE: 20220116
